FAERS Safety Report 11700393 (Version 1)
Quarter: 2015Q4

REPORT INFORMATION
  Report Type: Spontaneous
  Country: US (occurrence: None)
  Receive Date: 20151104
  Receipt Date: 20151104
  Transmission Date: 20160304
  Serious: Yes (Disabling, Other)
  Sender: FDA-Public Use
  Company Number: None

PATIENT
  Age: 33 Year
  Sex: Female
  Weight: 57.61 kg

DRUGS (9)
  1. METHYLPREDNISOLONE 4 MG DOSEPK CADISTA [Suspect]
     Active Substance: METHYLPREDNISOLONE
     Indication: ORAL SURGERY
     Dosage: TAKEN BY MOUTH; 1-2 PILLS
     Dates: start: 20151013, end: 20151019
  2. MAGNESIUM [Concomitant]
     Active Substance: MAGNESIUM
  3. VITAMIN B12 [Concomitant]
     Active Substance: CYANOCOBALAMIN
  4. BENADRYL [Concomitant]
     Active Substance: DIPHENHYDRAMINE HYDROCHLORIDE
  5. METHYLPREDNISOLONE 4 MG DOSEPK CADISTA [Suspect]
     Active Substance: METHYLPREDNISOLONE
     Indication: BONE GRAFT
     Dosage: TAKEN BY MOUTH; 1-2 PILLS
     Dates: start: 20151013, end: 20151019
  6. LUVOX [Concomitant]
     Active Substance: FLUVOXAMINE MALEATE
  7. MULTI-VITAMIN [Concomitant]
     Active Substance: .ALPHA.-TOCOPHEROL ACETATE, DL-\ASCORBIC ACID\CYANOCOBALAMIN\FLUORIDE ION\FOLIC ACID\NIACIN\PYRIDOXINE\RIBOFLAVIN\THIAMINE\VITAMIN A\VITAMIN D
  8. TYLENOL [Concomitant]
     Active Substance: ACETAMINOPHEN
  9. EPSOM SALT BATH [Concomitant]

REACTIONS (13)
  - Personality change [None]
  - Feeling abnormal [None]
  - Tachycardia [None]
  - Headache [None]
  - Hyperhidrosis [None]
  - Tooth injury [None]
  - Flushing [None]
  - Palpitations [None]
  - Eye pain [None]
  - Insomnia [None]
  - Syncope [None]
  - Arrhythmia [None]
  - Intracranial pressure increased [None]

NARRATIVE: CASE EVENT DATE: 20151019
